FAERS Safety Report 5570372-3 (Version None)
Quarter: 2007Q4

REPORT INFORMATION
  Report Type: 
  Country: None (occurrence: None)
  Receive Date: 20071219
  Receipt Date: 20071219
  Transmission Date: 20080405
  Serious: No
  Sender: FDA-Public Use
  Company Number: None

PATIENT
  Age: 43 Year
  Sex: Female
  Weight: 90.7194 kg

DRUGS (6)
  1. DIVALPROEX SODIUM [Suspect]
     Dosage: 1500MG DAY PO
     Route: 048
  2. GEODON [Concomitant]
  3. QUETIAPINE [Concomitant]
  4. METRONIDAZOLE [Concomitant]
  5. IBUPROFEN [Concomitant]
  6. PSEUDOEPHEDRINE HCL [Concomitant]

REACTIONS (1)
  - PLATELET COUNT DECREASED [None]
